FAERS Safety Report 7220171-1 (Version None)
Quarter: 2011Q1

REPORT INFORMATION
  Report Type: 
  Country: None (occurrence: None)
  Receive Date: 20110111
  Receipt Date: 20101228
  Transmission Date: 20110831
  Serious: Yes (Death, Other)
  Sender: FDA-Public Use
  Company Number: JP-BRISTOL-MYERS SQUIBB COMPANY-15474794

PATIENT
  Age: 14 Year
  Sex: Female

DRUGS (7)
  1. VEPESID [Suspect]
  2. EPIRUBICIN [Suspect]
  3. DEXAMETHASONE [Suspect]
  4. PREDNISONE [Suspect]
  5. CYTARABINE [Suspect]
  6. VINCRISTINE [Suspect]
  7. CYCLOPHOSPHAMIDE [Suspect]

REACTIONS (5)
  - ZYGOMYCOSIS [None]
  - NEUTROPENIA [None]
  - SUBDURAL HAEMATOMA [None]
  - HEMIPARESIS [None]
  - PLEURAL HAEMORRHAGE [None]
